FAERS Safety Report 7900027-9 (Version None)
Quarter: 2011Q4

REPORT INFORMATION
  Report Type: 
  Country: None (occurrence: None)
  Receive Date: 20111108
  Receipt Date: 20111025
  Transmission Date: 20120403
  Serious: Yes (Other)
  Sender: FDA-Public Use
  Company Number: US-RANBAXY-2010RR-40978

PATIENT
  Sex: Male

DRUGS (3)
  1. CIPRO [Suspect]
     Indication: INFECTION
     Dosage: UNK
     Route: 065
  2. LEVAQUIN [Suspect]
     Indication: URINARY TRACT INFECTION
     Dosage: 500 MG, UNK
     Route: 048
     Dates: start: 20060331, end: 20090422
  3. VANCOMYCIN [Concomitant]
     Indication: PRODUCT USED FOR UNKNOWN INDICATION
     Dosage: UNK
     Route: 065

REACTIONS (6)
  - MUSCULOSKELETAL PAIN [None]
  - ROTATOR CUFF SYNDROME [None]
  - TENDON DISORDER [None]
  - TENDONITIS [None]
  - PAIN IN EXTREMITY [None]
  - DEPRESSION [None]
